FAERS Safety Report 7598159-0 (Version None)
Quarter: 2011Q3

REPORT INFORMATION
  Report Type: 
  Country: None (occurrence: None)
  Receive Date: 20110708
  Receipt Date: 20110707
  Transmission Date: 20111222
  Serious: Yes (Death)
  Sender: FDA-Public Use
  Company Number: NO-ROXANE LABORATORIES, INC.-2011-RO-00953RO

PATIENT
  Age: 59 Year
  Sex: Male

DRUGS (6)
  1. AMITRIPTYLINE HCL [Suspect]
     Dosage: 125 MG
  2. BENDROFLUMETHIAZIDE [Suspect]
  3. ALPRAZOLAM [Suspect]
     Dosage: 4 MG
  4. ATENOLOL [Suspect]
  5. MIRTAZAPINE [Suspect]
     Dosage: 60 MG
  6. ISOSORBIDE [Suspect]

REACTIONS (1)
  - SEROTONIN SYNDROME [None]
